FAERS Safety Report 5576525-2 (Version None)
Quarter: 2007Q4

REPORT INFORMATION
  Report Type: 
  Country: None (occurrence: None)
  Receive Date: 20071228
  Receipt Date: 20071217
  Transmission Date: 20080405
  Serious: Yes (Other)
  Sender: FDA-Public Use
  Company Number: B0496098A

PATIENT
  Sex: Female

DRUGS (4)
  1. VENTOLIN [Suspect]
     Indication: EMPHYSEMA
     Dosage: 100MCG AS REQUIRED
     Route: 055
     Dates: start: 20010101
  2. SERETIDE [Suspect]
     Indication: EMPHYSEMA
     Route: 055
  3. BECOTIDE [Suspect]
     Indication: EMPHYSEMA
     Route: 055
  4. NEBULIZER [Concomitant]

REACTIONS (3)
  - COUGH [None]
  - DRY THROAT [None]
  - STRESS URINARY INCONTINENCE [None]
